FAERS Safety Report 9736554 (Version 1)
Quarter: 2013Q4

REPORT INFORMATION
  Report Type: Spontaneous
  Country: US (occurrence: US)
  Receive Date: 20131206
  Receipt Date: 20131206
  Transmission Date: 20140711
  Serious: No
  Sender: FDA-Public Use
  Company Number: US-BIOGENIDEC-2013BI097438

PATIENT
  Age: 46 Year
  Sex: Male

DRUGS (6)
  1. TECFIDERA [Suspect]
     Indication: MULTIPLE SCLEROSIS
     Route: 048
  2. BACLOFEN [Concomitant]
     Route: 048
  3. NEURONTIN [Concomitant]
     Route: 048
  4. OMEPRAZOLE [Concomitant]
     Route: 048
  5. AMBIEN [Concomitant]
     Route: 048
  6. VITAMIN D3 [Concomitant]
     Route: 048

REACTIONS (2)
  - Paraesthesia [Unknown]
  - Balance disorder [Unknown]
